FAERS Safety Report 16181011 (Version 1)
Quarter: 2019Q2

REPORT INFORMATION
  Report Type: Spontaneous
  Country: IE (occurrence: IE)
  Receive Date: 20190410
  Receipt Date: 20190410
  Transmission Date: 20190711
  Serious: Yes (Hospitalization)
  Sender: FDA-Public Use
  Company Number: IE-ASTRAZENECA-2019SE51209

PATIENT
  Age: 73 Year
  Sex: Female
  Weight: 42.7 kg

DRUGS (9)
  1. QUETIAPINE. [Suspect]
     Active Substance: QUETIAPINE
     Dosage: 100.0MG UNKNOWN
     Route: 048
     Dates: start: 20190125, end: 20190301
  2. VENLAFAXINE [Suspect]
     Active Substance: VENLAFAXINE HYDROCHLORIDE
     Dosage: 300.0MG UNKNOWN
     Route: 048
     Dates: start: 20180508, end: 20190301
  3. ANXICALM [Concomitant]
     Indication: ANXIETY
     Dosage: 4.0MG UNKNOWN
  4. MIRAP [PRAMIPEXOLE DIHYDROCHLORIDE] [Suspect]
     Active Substance: PRAMIPEXOLE DIHYDROCHLORIDE
     Dosage: 45.0MG UNKNOWN
     Route: 048
     Dates: start: 20190103, end: 20190301
  5. COVERSYL ARGININE [Concomitant]
     Active Substance: PERINDOPRIL ARGININE
     Indication: HYPERTENSION
     Dosage: 5.0MG UNKNOWN
  6. PRIADEL [Suspect]
     Active Substance: LITHIUM
     Dosage: 400.0MG UNKNOWN
     Route: 048
     Dates: start: 20190213, end: 20190225
  7. MIRAP [PRAMIPEXOLE DIHYDROCHLORIDE] [Suspect]
     Active Substance: PRAMIPEXOLE DIHYDROCHLORIDE
     Dosage: 45.0MG UNKNOWN
     Route: 048
     Dates: start: 20180525, end: 20190102
  8. QUETIAPINE. [Suspect]
     Active Substance: QUETIAPINE
     Dosage: 100.0MG UNKNOWN
     Route: 048
     Dates: start: 20190115, end: 20190124
  9. PRIADEL [Suspect]
     Active Substance: LITHIUM
     Dosage: 600.0MG UNKNOWN
     Route: 048
     Dates: start: 20190226, end: 20190301

REACTIONS (9)
  - Hyperhidrosis [Recovered/Resolved]
  - Muscle rigidity [Recovered/Resolved]
  - Hyperreflexia [Recovered/Resolved]
  - Hypertonia [Recovered/Resolved]
  - Serotonin syndrome [Recovered/Resolved]
  - Tremor [Recovered/Resolved]
  - Tachycardia [Recovered/Resolved]
  - Myoclonus [Recovered/Resolved]
  - Muscle spasms [Recovered/Resolved]

NARRATIVE: CASE EVENT DATE: 20190301
